FAERS Safety Report 10734020 (Version 2)
Quarter: 2016Q1

REPORT INFORMATION
  Report Type: Spontaneous
  Country: US (occurrence: US)
  Receive Date: 20150123
  Receipt Date: 20160204
  Transmission Date: 20160525
  Serious: No
  Sender: FDA-Public Use
  Company Number: US-GLAXOSMITHKLINE-US2014GSK048045

PATIENT
  Sex: Female

DRUGS (3)
  1. LAMICTAL [Suspect]
     Active Substance: LAMOTRIGINE
     Indication: BIPOLAR DISORDER
     Dosage: 200 MG, QD
  2. LAMICTAL [Suspect]
     Active Substance: LAMOTRIGINE
     Indication: AFFECTIVE DISORDER
     Dosage: 100 MG, QD
  3. LAMICTAL [Suspect]
     Active Substance: LAMOTRIGINE
     Dosage: 150 MG, UNK

REACTIONS (7)
  - Dizziness [Unknown]
  - Hormone level abnormal [Unknown]
  - Alopecia [Unknown]
  - Drug dose omission [Unknown]
  - Hair colour changes [Unknown]
  - Intentional underdose [Unknown]
  - Hair growth abnormal [Unknown]
